FAERS Safety Report 14415705 (Version 2)
Quarter: 2018Q2

REPORT INFORMATION
  Report Type: Not Available
  Country: US (occurrence: US)
  Receive Date: 20180122
  Receipt Date: 20180419
  Transmission Date: 20180711
  Serious: No
  Sender: FDA-Public Use
  Company Number: US-NEUROCRINE BIOSCIENCES INC.-2017NBI01713

PATIENT
  Sex: Female

DRUGS (7)
  1. VRAYLAR [Concomitant]
     Active Substance: CARIPRAZINE
     Dosage: AFTER DINNER
     Route: 048
     Dates: start: 20170727
  2. INGREZZA [Suspect]
     Active Substance: VALBENAZINE
     Route: 048
     Dates: start: 20171031, end: 20171117
  3. FETZIMA [Concomitant]
     Active Substance: LEVOMILNACIPRAN HYDROCHLORIDE
     Route: 048
     Dates: start: 20170727
  4. XANAX [Concomitant]
     Active Substance: ALPRAZOLAM
     Dosage: 1 OR 2 QHS PRN
     Route: 048
     Dates: start: 20170727
  5. INGREZZA [Suspect]
     Active Substance: VALBENAZINE
     Indication: PRODUCT USED FOR UNKNOWN INDICATION
     Route: 048
     Dates: start: 20171024, end: 20171031
  6. INGREZZA [Suspect]
     Active Substance: VALBENAZINE
     Route: 048
     Dates: start: 20171118, end: 20171129
  7. HYDROXYZINE [Concomitant]
     Active Substance: HYDROXYZINE HYDROCHLORIDE
     Dosage: 1 OR 2 TABLETS QHS
     Route: 048
     Dates: start: 20170727

REACTIONS (11)
  - Mobility decreased [Unknown]
  - Cardiac failure congestive [Unknown]
  - Tremor [Unknown]
  - Throat tightness [Unknown]
  - Asthenia [Unknown]
  - Peripheral swelling [Unknown]
  - Loss of personal independence in daily activities [Unknown]
  - Drooling [Unknown]
  - Cough [Unknown]
  - Restlessness [Unknown]
  - Musculoskeletal stiffness [Unknown]

NARRATIVE: CASE EVENT DATE: 2017
